FAERS Safety Report 6998796-8 (Version None)
Quarter: 2010Q3

REPORT INFORMATION
  Report Type: 
  Country: None (occurrence: None)
  Receive Date: 20100920
  Receipt Date: 20100907
  Transmission Date: 20110219
  Serious: Yes (Hospitalization, Other)
  Sender: FDA-Public Use
  Company Number: US-ELI_LILLY_AND_COMPANY-US201006004497

PATIENT
  Sex: Female

DRUGS (12)
  1. FORTEO [Suspect]
     Indication: OSTEOPOROSIS
     Dosage: 20 UG, DAILY (1/D)
     Route: 065
     Dates: start: 20100513
  2. TOPROL-XL [Concomitant]
  3. NORVASC [Concomitant]
  4. PREDNISONE [Concomitant]
  5. ACIPHEX [Concomitant]
  6. CALCIUM W/VITAMIN D NOS [Concomitant]
  7. MULTI-VITAMIN [Concomitant]
  8. MINERALS NOS [Concomitant]
  9. LOVAZA [Concomitant]
  10. COQ-10 [Concomitant]
  11. GRAPE SEED EXTRACT [Concomitant]
  12. WARFARIN [Concomitant]

REACTIONS (8)
  - ABDOMINAL PAIN [None]
  - ARTHRALGIA [None]
  - GAIT DISTURBANCE [None]
  - MUSCULOSKELETAL PAIN [None]
  - OEDEMA PERIPHERAL [None]
  - PAIN [None]
  - PAIN IN EXTREMITY [None]
  - THROMBOSIS [None]
